FAERS Safety Report 10041162 (Version 1)
Quarter: 2014Q1

REPORT INFORMATION
  Report Type: Spontaneous
  Country: US (occurrence: US)
  Receive Date: 20140327
  Receipt Date: 20140327
  Transmission Date: 20141002
  Serious: No
  Sender: FDA-Public Use
  Company Number: US-B.I. PHARMACEUTICALS,INC./RIDGEFIELD-2014-BI-12220BP

PATIENT
  Age: 36 Year
  Sex: Female
  Weight: 73 kg

DRUGS (10)
  1. MIRAPEX [Suspect]
     Indication: RESTLESS LEGS SYNDROME
     Dosage: 0.125 MG
     Route: 048
     Dates: start: 201312, end: 201401
  2. MIRAPEX [Suspect]
     Dosage: 0.25 MG
     Route: 048
     Dates: start: 201401, end: 201401
  3. MIRAPEX [Suspect]
     Dosage: 0.375 MG
     Route: 048
     Dates: start: 201401, end: 201401
  4. MIRAPEX [Suspect]
     Dosage: 0.5 MG
     Route: 048
     Dates: start: 201302, end: 201302
  5. WELLBUTRIN [Concomitant]
     Indication: PANIC ATTACK
     Dosage: 300 MG
     Route: 048
  6. TOPAMAX [Concomitant]
     Indication: MIGRAINE
     Dosage: 50 MG
     Route: 048
  7. ZOLOFT [Concomitant]
     Indication: PANIC ATTACK
     Dosage: 100 MG
     Route: 048
  8. ACIPHEX [Concomitant]
     Indication: GASTROOESOPHAGEAL REFLUX DISEASE
     Dosage: 20 MG
     Route: 048
  9. ALLEGRA [Concomitant]
     Indication: ALLERGY TO ANIMAL
     Dosage: 1 ANZ
     Route: 048
  10. PRAVASTATIN [Concomitant]
     Indication: BLOOD CHOLESTEROL INCREASED
     Dosage: 40 MG
     Route: 048

REACTIONS (1)
  - Drug ineffective [Not Recovered/Not Resolved]
